FAERS Safety Report 20551035 (Version 1)
Quarter: 2022Q1

REPORT INFORMATION
  Report Type: Report from Study
  Country: JP (occurrence: JP)
  Receive Date: 20220304
  Receipt Date: 20220304
  Transmission Date: 20220424
  Serious: Yes (Life-Threatening, Hospitalization, Other)
  Sender: FDA-Public Use
  Company Number: JP-ONO-2022JP005764

PATIENT
  Age: 68 Year
  Sex: Male

DRUGS (7)
  1. CARFILZOMIB [Suspect]
     Active Substance: CARFILZOMIB
     Indication: Plasma cell myeloma
     Dosage: 20 MG/M2, QW
     Route: 041
     Dates: start: 20200515, end: 20200515
  2. CARFILZOMIB [Suspect]
     Active Substance: CARFILZOMIB
     Dosage: 70 MG/M2, QW
     Route: 041
  3. CARFILZOMIB [Suspect]
     Active Substance: CARFILZOMIB
     Dosage: 70 MG/M2, QW
     Route: 041
     Dates: start: 20200612
  4. CARFILZOMIB [Suspect]
     Active Substance: CARFILZOMIB
     Dosage: 70 MG/M2, QW
     Route: 041
     Dates: start: 20200710
  5. CARFILZOMIB [Suspect]
     Active Substance: CARFILZOMIB
     Dosage: 70 MG/M2, QW
     Route: 041
     Dates: start: 20200814, end: 20200814
  6. DEXAMETHASONE [Concomitant]
     Active Substance: DEXAMETHASONE
     Indication: Plasma cell myeloma
     Dosage: 40 MG, QW
     Route: 065
     Dates: start: 20200515
  7. DEXAMETHASONE [Concomitant]
     Active Substance: DEXAMETHASONE
     Dosage: 40 MG, QW
     Route: 065
     Dates: start: 20200814, end: 20200814

REACTIONS (1)
  - Pneumonia [Recovered/Resolved]

NARRATIVE: CASE EVENT DATE: 20200814
